FAERS Safety Report 9252509 (Version 1)
Quarter: 2013Q1

REPORT INFORMATION
  Report Type: Spontaneous
  Country: US (occurrence: None)
  Receive Date: 20130305
  Receipt Date: 20130305
  Transmission Date: 20140127
  Serious: Yes (Other)
  Sender: FDA-Public Use
  Company Number: 163-21088-12090658

PATIENT
  Age: 69 Year
  Sex: Female
  Weight: 67.13 kg

DRUGS (11)
  1. REVLIMID [Suspect]
     Indication: PLASMA CELL MYELOMA
     Dosage: 10 MG, 21 IN 28 D, PO
     Route: 048
     Dates: start: 20091209
  2. ASPIRIN (ACETYLSALICYLIC ACID) (UNKNOWN) (ACETYLSALICYLIC ACID) [Concomitant]
  3. CALCIUM (CALCIUM) (UNKNOWN) [Concomitant]
  4. EFFEXOR (VENLAFAXINE HYDROCHLORIDE) (UNKNOWN) [Concomitant]
  5. GARLIC (GARLIC) (CAPSULES) [Concomitant]
  6. NEURONTIN (GABAPENTIN) (UNKNOWN) [Concomitant]
  7. OMEGA-3 ACIDS [Concomitant]
  8. VITAMIN B-12 (CYANOCOBALAMIN) (UNKNOWN) [Concomitant]
  9. VITAMIN B-6 (PYRIDOXINE HYDROCHLORIDE) (UNKNOWN) [Concomitant]
  10. VITAMIN C [Concomitant]
  11. VITAMIN D3 (COLECALCIFEROL) (UNKNOWN) [Concomitant]

REACTIONS (1)
  - Diarrhoea [None]
